FAERS Safety Report 9252940 (Version 3)
Quarter: 2013Q2

REPORT INFORMATION
  Report Type: Report from Study
  Country: US (occurrence: US)
  Receive Date: 20130424
  Receipt Date: 20130516
  Transmission Date: 20140414
  Serious: Yes (Hospitalization)
  Sender: FDA-Public Use
  Company Number: US-ABBOTT-13P-163-1077698-00

PATIENT
  Age: 62 Year
  Sex: Female

DRUGS (10)
  1. HUMIRA [Suspect]
     Indication: PSORIATIC ARTHROPATHY
     Dates: start: 20130228, end: 20130415
  2. METFORMIN [Concomitant]
     Indication: DIABETES MELLITUS
     Dosage: 3, TWICE DAILY
  3. SOLAR PEN [Concomitant]
     Indication: DIABETES MELLITUS
     Dosage: 45 UNITS AT LUNCH, 35 UNITS AT DINNER
  4. LISINOPRIL [Concomitant]
     Indication: BLOOD PRESSURE
  5. SPIRONOLACTONE W/HYDROCHLOROTHIAZIDE [Concomitant]
     Indication: BLOOD PRESSURE
     Dosage: 25/25
  6. ALLOPURINOL [Concomitant]
     Indication: PRODUCT USED FOR UNKNOWN INDICATION
  7. NEXIUM [Concomitant]
     Indication: PRODUCT USED FOR UNKNOWN INDICATION
  8. GABAPENTIN [Concomitant]
     Indication: NEURALGIA
  9. HYDROCODONE [Concomitant]
     Indication: NEURALGIA
     Dosage: 5/500, 4 TIMES DAILY
  10. CLOBETASOL [Concomitant]
     Indication: PSORIASIS
     Route: 061

REACTIONS (16)
  - Hypoaesthesia [Not Recovered/Not Resolved]
  - Infection [Not Recovered/Not Resolved]
  - Dehydration [Not Recovered/Not Resolved]
  - Chest pain [Recovered/Resolved]
  - Paraesthesia [Not Recovered/Not Resolved]
  - Neck pain [Recovering/Resolving]
  - Vertebral foraminal stenosis [Not Recovered/Not Resolved]
  - Cervical radiculopathy [Not Recovered/Not Resolved]
  - Pseudomonas infection [Recovering/Resolving]
  - Intervertebral disc protrusion [Not Recovered/Not Resolved]
  - Asthenia [Unknown]
  - Nasopharyngitis [Unknown]
  - Cough [Unknown]
  - Sputum discoloured [Unknown]
  - Haemoptysis [Unknown]
  - Pyrexia [Unknown]
